FAERS Safety Report 8193163-6 (Version None)
Quarter: 2012Q1

REPORT INFORMATION
  Report Type: 
  Country: None (occurrence: None)
  Receive Date: 20120221
  Receipt Date: 20111212
  Transmission Date: 20120608
  Serious: No
  Sender: FDA-Public Use
  Company Number: 047601

PATIENT
  Sex: Male

DRUGS (1)
  1. LACOSAMIDE [Suspect]
     Dosage: (200 MG/20 ML DAILY ORAL)
     Route: 048
     Dates: start: 20090401

REACTIONS (1)
  - NERVOUSNESS [None]
